FAERS Safety Report 12857400 (Version 3)
Quarter: 2016Q4

REPORT INFORMATION
  Report Type: Report from Study
  Country: DE (occurrence: DE)
  Receive Date: 20161018
  Receipt Date: 20161107
  Transmission Date: 20170207
  Serious: Yes (Hospitalization)
  Sender: FDA-Public Use
  Company Number: DE-PFIZER INC-2016446523

PATIENT
  Age: 65 Year
  Sex: Male
  Weight: 105 kg

DRUGS (4)
  1. ETORICOXIB [Suspect]
     Active Substance: ETORICOXIB
     Indication: METASTATIC MALIGNANT MELANOMA
     Dosage: 60 MG, UNK
     Route: 048
     Dates: start: 20160622, end: 20160920
  2. PIOGLITAZONE. [Suspect]
     Active Substance: PIOGLITAZONE
     Indication: METASTATIC MALIGNANT MELANOMA
     Dosage: 60 MG, UNK
     Route: 048
     Dates: start: 20160622, end: 20160920
  3. TEMSIROLIMUS [Suspect]
     Active Substance: TEMSIROLIMUS
     Indication: METASTATIC MALIGNANT MELANOMA
     Dosage: 25 MG, UNK
     Route: 042
     Dates: start: 20160622, end: 20160921
  4. TROFOSFAMIDE [Suspect]
     Active Substance: TROFOSFAMIDE
     Indication: METASTATIC MALIGNANT MELANOMA
     Dosage: 150 MG, DAILY
     Route: 048
     Dates: start: 20160622, end: 20160921

REACTIONS (1)
  - Pneumonitis [Recovered/Resolved]

NARRATIVE: CASE EVENT DATE: 20160921
